FAERS Safety Report 5813866-5 (Version None)
Quarter: 2008Q3

REPORT INFORMATION
  Report Type: 
  Country: None (occurrence: None)
  Receive Date: 20080717
  Receipt Date: 20080714
  Transmission Date: 20090109
  Serious: Yes (Death, Hospitalization, Other)
  Sender: FDA-Public Use
  Company Number: US-PURDUE-USA_2004_0015384

PATIENT
  Age: 55 Year
  Sex: Female

DRUGS (24)
  1. VISTARIL [Concomitant]
     Indication: DRUG USE FOR UNKNOWN INDICATION
     Dosage: 30 MG, HS
  2. PARAFON FORTE [Concomitant]
     Indication: MUSCLE SPASMS
     Dosage: 1 UNK, QID PRN
  3. RESTORIL [Concomitant]
     Indication: DRUG USE FOR UNKNOWN INDICATION
     Dosage: 30 MG, HS
  4. COUMADIN [Concomitant]
     Indication: DRUG USE FOR UNKNOWN INDICATION
     Dosage: UNK UNK, UNK
  5. PAXIL [Concomitant]
     Indication: DRUG USE FOR UNKNOWN INDICATION
     Dosage: 10 MG, DAILY
  6. MACROBID [Concomitant]
     Indication: DRUG USE FOR UNKNOWN INDICATION
     Dosage: 100 MG, BID
  7. CALCIUM [Concomitant]
     Indication: DRUG USE FOR UNKNOWN INDICATION
     Dosage: UNK UNK, UNK
  8. MAGNESIUM [Concomitant]
     Indication: DRUG USE FOR UNKNOWN INDICATION
     Dosage: UNK UNK, UNK
  9. GINSENG [Concomitant]
     Indication: DRUG USE FOR UNKNOWN INDICATION
     Dosage: UNK UNK, UNK
  10. VITAMIN E [Concomitant]
     Indication: DRUG USE FOR UNKNOWN INDICATION
     Dosage: UNK UNK, UNK
     Route: 065
  11. PREVACID [Concomitant]
     Indication: DRUG USE FOR UNKNOWN INDICATION
     Dosage: UNK UNK, UNK
  12. NEURONTIN [Concomitant]
     Indication: METASTATIC NEOPLASM
     Dosage: UNK UNK, UNK
  13. XANAX [Concomitant]
     Indication: DRUG USE FOR UNKNOWN INDICATION
     Dosage: UNK UNK, UNK
  14. AMBIEN [Concomitant]
     Indication: DRUG USE FOR UNKNOWN INDICATION
     Dosage: UNK UNK, UNK
  15. POTASSIUM CHLORIDE [Concomitant]
     Indication: DRUG USE FOR UNKNOWN INDICATION
     Dosage: UNK UNK, UNK
  16. LASIX [Concomitant]
     Indication: DRUG USE FOR UNKNOWN INDICATION
     Dosage: UNK UNK, UNK
  17. OXYCONTIN [Suspect]
     Indication: PAIN
     Dosage: UNK UNK, UNK
     Route: 065
  18. LORTAB [Suspect]
     Indication: PAIN
  19. DARVOCET-N 100 [Suspect]
     Indication: PAIN
  20. LORCET-HD [Suspect]
     Indication: PAIN
  21. BENZODIAZEPINE DERIVATIVES [Concomitant]
     Indication: DRUG USE FOR UNKNOWN INDICATION
  22. PROMETHAZINE [Suspect]
     Indication: DRUG USE FOR UNKNOWN INDICATION
  23. DIPHENHYDRAMINE HCL [Suspect]
     Indication: DRUG USE FOR UNKNOWN INDICATION
  24. PROPOXYPHENE [Suspect]
     Indication: DRUG USE FOR UNKNOWN INDICATION

REACTIONS (35)
  - ANXIETY [None]
  - ARTHRALGIA [None]
  - BACK PAIN [None]
  - BURN INFECTION [None]
  - DEPRESSION [None]
  - DRUG ABUSE [None]
  - DRUG DEPENDENCE [None]
  - DYSPEPSIA [None]
  - DYSPNOEA [None]
  - DYSURIA [None]
  - HAEMARTHROSIS [None]
  - HAEMATEMESIS [None]
  - HALLUCINATION [None]
  - HEPATIC ENZYME INCREASED [None]
  - HYPERLIPIDAEMIA [None]
  - HYPOKALAEMIA [None]
  - HYPOPROTHROMBINAEMIA [None]
  - INSOMNIA [None]
  - MULTIPLE DRUG OVERDOSE ACCIDENTAL [None]
  - NAUSEA [None]
  - OEDEMA PERIPHERAL [None]
  - PAIN [None]
  - PAIN IN EXTREMITY [None]
  - PROTHROMBIN TIME SHORTENED [None]
  - PYREXIA [None]
  - RASH [None]
  - STRESS URINARY INCONTINENCE [None]
  - SYNCOPE [None]
  - THERMAL BURN [None]
  - URINARY TRACT INFECTION [None]
  - VARICOPHLEBITIS [None]
  - VIRAL INFECTION [None]
  - WEIGHT DECREASED [None]
  - WHITE BLOOD CELL COUNT INCREASED [None]
  - WRONG TECHNIQUE IN DRUG USAGE PROCESS [None]
